FAERS Safety Report 9356342 (Version 1)
Quarter: 2013Q2

REPORT INFORMATION
  Report Type: Spontaneous
  Country: US (occurrence: None)
  Receive Date: 20130614
  Receipt Date: 20130614
  Transmission Date: 20140414
  Serious: Yes (Other)
  Sender: FDA-Public Use
  Company Number: 2013EXPUS00109

PATIENT
  Age: 51 Year
  Sex: Male

DRUGS (1)
  1. EXPAREL [Suspect]
     Indication: POSTOPERATIVE ANALGESIA
     Dates: start: 20130506, end: 20130506

REACTIONS (3)
  - Infection [None]
  - Wound drainage [None]
  - Erythema [None]
